FAERS Safety Report 10586005 (Version 2)
Quarter: 2016Q4

REPORT INFORMATION
  Report Type: Spontaneous
  Country: US (occurrence: US)
  Receive Date: 20141115
  Receipt Date: 20161228
  Transmission Date: 20170206
  Serious: Yes (Other)
  Sender: FDA-Public Use
  Company Number: US-AUROBINDO-AUR-APL-2014-11993

PATIENT
  Age: 22 Year
  Sex: Female

DRUGS (1)
  1. TRIMETHOPRIM+SULFAMETHOXAZOLE [Suspect]
     Active Substance: SULFAMETHOXAZOLE\TRIMETHOPRIM
     Indication: URINARY TRACT INFECTION
     Dosage: UNK
     Route: 048

REACTIONS (17)
  - Mucosal necrosis [Unknown]
  - Rash [Recovering/Resolving]
  - Eyelid oedema [Recovering/Resolving]
  - Leukocytosis [Unknown]
  - Vitritis [Recovered/Resolved]
  - Mucosal inflammation [Unknown]
  - Autoimmune uveitis [Recovering/Resolving]
  - Eye pruritus [Unknown]
  - Retinal haemorrhage [Recovered/Resolved]
  - Lip swelling [Recovering/Resolving]
  - Ocular hyperaemia [Unknown]
  - Vision blurred [Unknown]
  - Malaise [Unknown]
  - Drug reaction with eosinophilia and systemic symptoms [Unknown]
  - Photophobia [Unknown]
  - Skin hyperpigmentation [Unknown]
  - Eosinophilia [Unknown]
